FAERS Safety Report 24533598 (Version 1)
Quarter: 2024Q4

REPORT INFORMATION
  Report Type: Spontaneous
  Country: US (occurrence: None)
  Receive Date: 20241021
  Receipt Date: 20241021
  Transmission Date: 20250115
  Serious: Yes (unspecified)
  Sender: Public
  Company Number: None

PATIENT
  Age: 35 Year
  Sex: Male
  Weight: 74.25 kg

DRUGS (1)
  1. EMTRICITABINE AND TENOFOVIR DISOPROXIL FUMARATE [Suspect]
     Active Substance: EMTRICITABINE\TENOFOVIR DISOPROXIL FUMARATE
     Indication: Prophylaxis against HIV infection
     Dosage: OTHER QUANTITY : 1 TABLET(S);?
     Route: 048

REACTIONS (2)
  - Depression [None]
  - Therapeutic product effect decreased [None]

NARRATIVE: CASE EVENT DATE: 20241021
